FAERS Safety Report 23134518 (Version 3)
Quarter: 2023Q4

REPORT INFORMATION
  Report Type: Spontaneous
  Country: US (occurrence: US)
  Receive Date: 20231101
  Receipt Date: 20231211
  Transmission Date: 20240110
  Serious: No
  Sender: FDA-Public Use
  Company Number: US-SANOFI-01819076

PATIENT
  Age: 68 Year
  Sex: Male

DRUGS (1)
  1. LANTUS SOLOSTAR [Suspect]
     Active Substance: INSULIN GLARGINE
     Indication: Type 2 diabetes mellitus
     Dosage: 23 U, QD

REACTIONS (2)
  - Injection site haemorrhage [Recovered/Resolved]
  - Injection site injury [Unknown]

NARRATIVE: CASE EVENT DATE: 20231001
